FAERS Safety Report 20933522 (Version 3)
Quarter: 2024Q2

REPORT INFORMATION
  Report Type: Spontaneous
  Country: NL (occurrence: NL)
  Receive Date: 20220608
  Receipt Date: 20240515
  Transmission Date: 20240715
  Serious: Yes (Other)
  Sender: FDA-Public Use
  Company Number: NL-SUN PHARMACEUTICAL INDUSTRIES LTD-2022R1-337444

PATIENT
  Age: 10 Year
  Sex: Female

DRUGS (13)
  1. DOXORUBICIN [Suspect]
     Active Substance: DOXORUBICIN
     Indication: Chemotherapy
     Dosage: UNK/ 8 CYCLES
     Route: 042
     Dates: start: 201606, end: 201612
  2. DOXORUBICIN [Suspect]
     Active Substance: DOXORUBICIN
     Indication: Adrenocortical carcinoma
  3. DOXORUBICIN [Suspect]
     Active Substance: DOXORUBICIN
     Indication: Metastasis
  4. CISPLATIN [Suspect]
     Active Substance: CISPLATIN
     Indication: Chemotherapy
     Dosage: UNK
     Route: 042
     Dates: start: 201606, end: 201612
  5. CISPLATIN [Suspect]
     Active Substance: CISPLATIN
     Indication: Adrenocortical carcinoma
  6. CISPLATIN [Suspect]
     Active Substance: CISPLATIN
     Indication: Metastasis
  7. ETOPOSIDE [Suspect]
     Active Substance: ETOPOSIDE
     Indication: Chemotherapy
     Dosage: UNK/ 8 CYCLES
     Route: 065
     Dates: start: 201606, end: 201612
  8. ETOPOSIDE [Suspect]
     Active Substance: ETOPOSIDE
     Indication: Adrenocortical carcinoma
  9. ETOPOSIDE [Suspect]
     Active Substance: ETOPOSIDE
     Indication: Metastasis
  10. MITOTANE [Suspect]
     Active Substance: MITOTANE
     Indication: Chemotherapy
     Dosage: UNK/ 8 CYCLES, 2 YEARS OF MITOTANE TREATMENT AT AD
     Route: 065
  11. MITOTANE [Suspect]
     Active Substance: MITOTANE
     Indication: Adrenocortical carcinoma
  12. HYDROCORTISONE [Concomitant]
     Active Substance: HYDROCORTISONE
     Indication: Supplementation therapy
     Dosage: UNK
     Route: 065
  13. FLUDROCORTISONE [Concomitant]
     Active Substance: FLUDROCORTISONE
     Indication: Supplementation therapy
     Dosage: UNK
     Route: 065

REACTIONS (12)
  - Hypocalcaemia [Recovered/Resolved]
  - Anaemia [Recovered/Resolved]
  - Memory impairment [Recovering/Resolving]
  - Cushing^s syndrome [Unknown]
  - Mouth ulceration [Unknown]
  - Cognitive disorder [Recovering/Resolving]
  - Metastasis [Recovered/Resolved]
  - Central hypothyroidism [Recovered/Resolved]
  - Neurotoxicity [Recovering/Resolving]
  - Neutropenia [Recovered/Resolved]
  - Nausea [Recovered/Resolved]
  - Stomatitis [Recovered/Resolved]

NARRATIVE: CASE EVENT DATE: 20160701
